FAERS Safety Report 8082592-7 (Version None)
Quarter: 2012Q1

REPORT INFORMATION
  Report Type: 
  Country: None (occurrence: None)
  Receive Date: 20120127
  Receipt Date: 20110222
  Transmission Date: 20120608
  Serious: No
  Sender: FDA-Public Use
  Company Number: US-ABBOTT-11P-163-0707060-00

PATIENT
  Sex: Female
  Weight: 68.1 kg

DRUGS (4)
  1. ASACOL [Concomitant]
     Indication: CROHN'S DISEASE
     Route: 048
  2. HUMIRA [Suspect]
     Indication: CROHN'S DISEASE
     Route: 058
     Dates: start: 20090101
  3. ASACOL [Concomitant]
     Indication: COLITIS ULCERATIVE
  4. IBUPROFEN [Concomitant]
     Indication: PRODUCT USED FOR UNKNOWN INDICATION
     Route: 048
     Dates: end: 20110101

REACTIONS (4)
  - PARAESTHESIA [None]
  - FEELING ABNORMAL [None]
  - COLITIS ULCERATIVE [None]
  - HAEMATOCHEZIA [None]
